FAERS Safety Report 5903563-X (Version None)
Quarter: 2008Q3

REPORT INFORMATION
  Report Type: 
  Country: None (occurrence: None)
  Receive Date: 20080930
  Receipt Date: 20080922
  Transmission Date: 20090109
  Serious: Yes (Hospitalization, Other)
  Sender: FDA-Public Use
  Company Number: GR-ABBOTT-08P-066-0477984-00

PATIENT
  Age: 69 Year
  Sex: Male

DRUGS (3)
  1. BIPERIDEN HYDROCHLORIDE TAB [Suspect]
     Indication: SCHIZOPHRENIA
     Dosage: NOT REPORTED
  2. HALOPERIDOL [Suspect]
     Indication: SCHIZOPHRENIA
     Dosage: NOT REPORTED
     Route: 050
  3. PIMOZIDE [Suspect]
     Indication: SCHIZOPHRENIA
     Dosage: NOT REPORTED

REACTIONS (1)
  - NEUROLEPTIC MALIGNANT SYNDROME [None]
